FAERS Safety Report 4272219-4 (Version None)
Quarter: 2004Q1

REPORT INFORMATION
  Report Type: 
  Country: None (occurrence: None)
  Receive Date: 20040114
  Receipt Date: 20040106
  Transmission Date: 20041129
  Serious: Yes (Death)
  Sender: FDA-Public Use
  Company Number: US-JNJFOC-20040101229

PATIENT
  Age: 42 Year
  Sex: Female

DRUGS (2)
  1. TOPAMAX [Suspect]
     Indication: CONVULSION
     Dosage: 300 MG, IN 1 DAY, ORAL; 400 MG, IN 1 DAY, ORAL
     Route: 048
     Dates: end: 20031218
  2. TOPAMAX [Suspect]
     Indication: CONVULSION
     Dosage: 300 MG, IN 1 DAY, ORAL; 400 MG, IN 1 DAY, ORAL
     Route: 048
     Dates: end: 20040106

REACTIONS (2)
  - CONDITION AGGRAVATED [None]
  - CONVULSION [None]
